FAERS Safety Report 6109432-7 (Version None)
Quarter: 2009Q1

REPORT INFORMATION
  Report Type: 
  Country: None (occurrence: None)
  Receive Date: 20090310
  Receipt Date: 20090305
  Transmission Date: 20090719
  Serious: Yes (Other)
  Sender: FDA-Public Use
  Company Number: B0564192A

PATIENT
  Age: 83 Year
  Sex: Female

DRUGS (7)
  1. PROPAFENONE HCL [Suspect]
     Indication: ATRIAL FIBRILLATION
     Route: 065
     Dates: start: 20070220
  2. CITALOPRAM HYDROBROMIDE [Concomitant]
  3. BERODUAL DOSIER-AEROSOL [Concomitant]
  4. FUROSEMIDE [Concomitant]
     Dosage: 40MG PER DAY
  5. SELOKEN RETARD [Concomitant]
  6. ASPIRIN [Concomitant]
     Dosage: 30MG PER DAY
  7. LEVOTHYROXINE SODIUM [Concomitant]
     Dosage: 25MG PER DAY

REACTIONS (1)
  - ELECTROCARDIOGRAM QT PROLONGED [None]
